FAERS Safety Report 16766613 (Version 2)
Quarter: 2019Q4

REPORT INFORMATION
  Report Type: Spontaneous
  Country: US (occurrence: US)
  Receive Date: 20190903
  Receipt Date: 20191031
  Transmission Date: 20200122
  Serious: No
  Sender: FDA-Public Use
  Company Number: US-PFIZER INC-2019374545

PATIENT
  Age: 51 Year

DRUGS (1)
  1. VIAGRA [Suspect]
     Active Substance: SILDENAFIL CITRATE
     Indication: ERECTILE DYSFUNCTION
     Dosage: 0.5 DF, AS NEEDED (1/2 A TABLET BY MOUTH DAILY AS NEEDED)
     Route: 048

REACTIONS (1)
  - Blood testosterone decreased [Unknown]
